FAERS Safety Report 19221917 (Version 2)
Quarter: 2021Q2

REPORT INFORMATION
  Report Type: Report from Study
  Country: US (occurrence: US)
  Receive Date: 20210506
  Receipt Date: 20210516
  Transmission Date: 20210717
  Serious: No
  Sender: FDA-Public Use
  Company Number: NVSC2021US097007

PATIENT
  Age: 57 Year
  Sex: Male

DRUGS (1)
  1. ENTRESTO [Suspect]
     Active Substance: SACUBITRIL\VALSARTAN
     Indication: CARDIAC FAILURE
     Dosage: 24.26 MG
     Route: 048
     Dates: start: 202101

REACTIONS (4)
  - Psychomotor hyperactivity [Unknown]
  - Dyspnoea [Unknown]
  - Anxiety [Unknown]
  - Hypotension [Unknown]

NARRATIVE: CASE EVENT DATE: 202101
